FAERS Safety Report 5099929-3 (Version None)
Quarter: 2006Q3

REPORT INFORMATION
  Report Type: 
  Country: None (occurrence: None)
  Receive Date: 20060906
  Receipt Date: 20060829
  Transmission Date: 20061208
  Serious: Yes (Hospitalization)
  Sender: FDA-Public Use
  Company Number: UKP06000219

PATIENT
  Age: 55 Year
  Sex: Female

DRUGS (2)
  1. ASACOL [Suspect]
     Dosage: 400 MG, ORAL
     Route: 048
  2. AZATHIOPRINE [Concomitant]

REACTIONS (1)
  - LARGE INTESTINAL OBSTRUCTION [None]
